FAERS Safety Report 10732748 (Version 3)
Quarter: 2015Q2

REPORT INFORMATION
  Report Type: Spontaneous
  Country: FR (occurrence: FR)
  Receive Date: 20150123
  Receipt Date: 20150619
  Transmission Date: 20150821
  Serious: Yes (Life-Threatening, Hospitalization)
  Sender: FDA-Public Use
  Company Number: FR-BRISTOL-MYERS SQUIBB COMPANY-BMS-2015-001144

PATIENT
  Age: 77 Year
  Sex: Male
  Weight: 98 kg

DRUGS (1)
  1. YERVOY [Suspect]
     Active Substance: IPILIMUMAB
     Indication: MALIGNANT MELANOMA
     Dosage: UNK
     Route: 065
     Dates: start: 20141008

REACTIONS (7)
  - Orchitis [Recovered/Resolved]
  - Toxic skin eruption [Recovered/Resolved]
  - Gait disturbance [Recovered/Resolved]
  - Meningitis aseptic [Recovered/Resolved]
  - Hypophysitis [Not Recovered/Not Resolved]
  - General physical health deterioration [Recovering/Resolving]
  - Fatigue [Unknown]

NARRATIVE: CASE EVENT DATE: 201410
